FAERS Safety Report 15213072 (Version 1)
Quarter: 2018Q3

REPORT INFORMATION
  Report Type: Spontaneous
  Country: US (occurrence: US)
  Receive Date: 20180730
  Receipt Date: 20180730
  Transmission Date: 20181010
  Serious: No
  Sender: FDA-Public Use
  Company Number: US-ASTRAZENECA-2018SE93343

PATIENT
  Sex: Female

DRUGS (1)
  1. MOVANTIK [Suspect]
     Active Substance: NALOXEGOL OXALATE
     Indication: PAIN
     Dosage: UNKNOWN
     Route: 048

REACTIONS (6)
  - Extra dose administered [Unknown]
  - Product use issue [Unknown]
  - Chills [Unknown]
  - Withdrawal syndrome [Unknown]
  - Nausea [Unknown]
  - Off label use [Unknown]
